FAERS Safety Report 14846389 (Version 2)
Quarter: 2018Q2

REPORT INFORMATION
  Report Type: Spontaneous
  Country: US (occurrence: US)
  Receive Date: 20180504
  Receipt Date: 20180508
  Transmission Date: 20180711
  Serious: No
  Sender: FDA-Public Use
  Company Number: US-TEVA-2018-US-888164

PATIENT
  Sex: Female
  Weight: 73 kg

DRUGS (9)
  1. TIZANIDINE. [Concomitant]
     Active Substance: TIZANIDINE
  2. MORPHINE SULFATE ER [Concomitant]
     Active Substance: MORPHINE SULFATE
  3. TRAZODONE [Concomitant]
     Active Substance: TRAZODONE HYDROCHLORIDE
  4. NEURONTIN [Concomitant]
     Active Substance: GABAPENTIN
  5. LEVOTHYROXINE. [Concomitant]
     Active Substance: LEVOTHYROXINE
     Indication: THYROID DISORDER
  6. FENTORA [Suspect]
     Active Substance: FENTANYL CITRATE
     Indication: ARACHNOIDITIS
     Route: 065
     Dates: start: 2005, end: 2010
  7. OXYBUTYNIN. [Concomitant]
     Active Substance: OXYBUTYNIN CHLORIDE
  8. MORPHINE SULFATE IR [Concomitant]
     Active Substance: MORPHINE SULFATE
  9. GENERIC PROZAC [Concomitant]
     Active Substance: FLUOXETINE HYDROCHLORIDE

REACTIONS (8)
  - Product use in unapproved indication [Unknown]
  - Drug dose omission [Unknown]
  - Mobility decreased [Unknown]
  - Fatigue [Unknown]
  - Pain [Unknown]
  - Asthenia [Unknown]
  - Impaired quality of life [Unknown]
  - Drug ineffective for unapproved indication [Unknown]
